FAERS Safety Report 11544191 (Version 1)
Quarter: 2015Q3

REPORT INFORMATION
  Report Type: Spontaneous
  Country: HR (occurrence: None)
  Receive Date: 20150922
  Receipt Date: 20150922
  Transmission Date: 20151125
  Serious: No
  Sender: FDA-Public Use
  Company Number: 1509HRV001424

PATIENT
  Age: 72 Year
  Sex: Female
  Weight: 90 kg

DRUGS (2)
  1. CEDAX [Suspect]
     Active Substance: CEFTIBUTEN DIHYDRATE
     Indication: BRONCHITIS
     Route: 048
     Dates: start: 20150424, end: 20150428
  2. SERETIDE DISKUS (FLUTICASONE PROPIONATE, SALMETEROL XINAFOATE) [Concomitant]

REACTIONS (4)
  - Paraesthesia oral [None]
  - Erythema [None]
  - Eye pain [None]
  - Eye irritation [None]

NARRATIVE: CASE EVENT DATE: 20150427
